FAERS Safety Report 14381873 (Version 1)
Quarter: 2018Q1

REPORT INFORMATION
  Report Type: Report from Study
  Country: GB (occurrence: GB)
  Receive Date: 20180112
  Receipt Date: 20180112
  Transmission Date: 20180509
  Serious: Yes (Other)
  Sender: FDA-Public Use
  Company Number: GB-JNJFOC-20180102267

PATIENT
  Age: 39 Year
  Sex: Male
  Weight: 77.1 kg

DRUGS (4)
  1. DICLOFENAC [Concomitant]
     Active Substance: DICLOFENAC
     Route: 065
     Dates: start: 19900101
  2. STELARA [Suspect]
     Active Substance: USTEKINUMAB
     Indication: PSORIASIS
     Route: 058
     Dates: start: 20110723
  3. CODEINE [Concomitant]
     Active Substance: CODEINE
     Route: 065
     Dates: start: 20160217
  4. PARACETAMOL [Concomitant]
     Active Substance: ACETAMINOPHEN
     Route: 065
     Dates: start: 20160217

REACTIONS (1)
  - Relapsing-remitting multiple sclerosis [Recovering/Resolving]

NARRATIVE: CASE EVENT DATE: 20140824
